FAERS Safety Report 21268852 (Version 1)
Quarter: 2022Q3

REPORT INFORMATION
  Report Type: Other
  Country: CA (occurrence: CA)
  Receive Date: 20220830
  Receipt Date: 20220830
  Transmission Date: 20221026
  Serious: Yes (Other)
  Sender: FDA-Public Use
  Company Number: CA-APOTEX-2022AP011985

PATIENT
  Age: 43 Year
  Sex: Male
  Weight: 46 kg

DRUGS (2)
  1. ACETAMINOPHEN [Suspect]
     Active Substance: ACETAMINOPHEN
     Indication: Product used for unknown indication
     Dosage: UNK
     Route: 065
  2. PEMBROLIZUMAB [Suspect]
     Active Substance: PEMBROLIZUMAB
     Indication: Oesophageal carcinoma
     Dosage: 200 MILLIGRAM, 1 EVERY 3 WEEKS
     Route: 065

REACTIONS (19)
  - Chest pain [Unknown]
  - Anger [Unknown]
  - Anxiety [Unknown]
  - Appetite disorder [Unknown]
  - Back pain [Unknown]
  - Decreased appetite [Unknown]
  - Depression [Unknown]
  - Dysphagia [Unknown]
  - Dyspnoea [Unknown]
  - Fatigue [Unknown]
  - Frustration tolerance decreased [Unknown]
  - General physical condition abnormal [Unknown]
  - Malaise [Unknown]
  - Malignant neoplasm progression [Unknown]
  - Mouth haemorrhage [Unknown]
  - Oesophagitis [Unknown]
  - Poor quality sleep [Unknown]
  - Somnolence [Unknown]
  - Weight fluctuation [Unknown]
